FAERS Safety Report 22033271 (Version 5)
Quarter: 2025Q2

REPORT INFORMATION
  Report Type: Spontaneous
  Country: NL (occurrence: NL)
  Receive Date: 20230224
  Receipt Date: 20250522
  Transmission Date: 20250717
  Serious: Yes (Hospitalization, Other)
  Sender: AUROBINDO
  Company Number: NL-BEH-2022151027

PATIENT
  Age: 75 Year
  Sex: Male
  Weight: 90 kg

DRUGS (24)
  1. PHENYTOIN [Suspect]
     Active Substance: PHENYTOIN
     Indication: Gamma-glutamyltransferase increased
     Route: 065
     Dates: end: 20221006
  2. PREDNISONE [Suspect]
     Active Substance: PREDNISONE
     Indication: Type 2 diabetes mellitus
     Dosage: 15 MILLIGRAM, ONCE A DAY
     Route: 048
  3. PREDNISONE [Suspect]
     Active Substance: PREDNISONE
     Dosage: 60 MILLIGRAM, ONCE A DAY
     Route: 065
  4. PREDNISONE [Suspect]
     Active Substance: PREDNISONE
     Dosage: 40 MILLIGRAM, ONCE A DAY
     Route: 065
     Dates: end: 202211
  5. PRIVIGEN [Suspect]
     Active Substance: HUMAN IMMUNOGLOBULIN G
     Indication: Epilepsy
     Route: 042
     Dates: start: 202210, end: 202210
  6. PRIVIGEN [Suspect]
     Active Substance: HUMAN IMMUNOGLOBULIN G
     Route: 042
     Dates: start: 20221006, end: 20221010
  7. PRIVIGEN [Suspect]
     Active Substance: HUMAN IMMUNOGLOBULIN G
     Dosage: 35 GRAM, ONCE A DAY
     Route: 042
     Dates: start: 20221027, end: 20221031
  8. PRIVIGEN [Suspect]
     Active Substance: HUMAN IMMUNOGLOBULIN G
     Route: 042
     Dates: start: 20221006, end: 20221031
  9. PRIVIGEN [Suspect]
     Active Substance: HUMAN IMMUNOGLOBULIN G
     Route: 042
     Dates: start: 202210, end: 202210
  10. RITUXIMAB [Suspect]
     Active Substance: RITUXIMAB
     Indication: Product used for unknown indication
     Route: 042
     Dates: end: 20221118
  11. RITUXIMAB [Suspect]
     Active Substance: RITUXIMAB
     Route: 042
     Dates: end: 20221105
  12. CEFTRIAXONE [Concomitant]
     Active Substance: CEFTRIAXONE
     Indication: Product used for unknown indication
     Dosage: 2 GRAM, ONCE A DAY
     Route: 042
     Dates: start: 20221026, end: 20221030
  13. CEFTRIAXONE [Concomitant]
     Active Substance: CEFTRIAXONE
     Dosage: 2 GRAM, ONCE A DAY
     Route: 042
     Dates: start: 20221011, end: 20221015
  14. CEFTRIAXONE [Concomitant]
     Active Substance: CEFTRIAXONE
     Dosage: 2 GRAM, ONCE A DAY
     Route: 042
     Dates: start: 20221101, end: 20221105
  15. CIPROFLOXACIN LACTATE [Concomitant]
     Active Substance: CIPROFLOXACIN LACTATE
     Indication: Product used for unknown indication
     Dosage: 1200 MILLIGRAM, ONCE A DAY
     Route: 042
     Dates: start: 20221026, end: 20221104
  16. INSULIN GLULISINE [Concomitant]
     Active Substance: INSULIN GLULISINE
     Indication: Type 2 diabetes mellitus
     Route: 065
  17. LANTUS [Concomitant]
     Active Substance: INSULIN GLARGINE
     Indication: Type 2 diabetes mellitus
     Route: 065
  18. LIRAGLUTIDE [Concomitant]
     Active Substance: LIRAGLUTIDE
     Indication: Type 2 diabetes mellitus
     Route: 065
  19. METFORMIN HYDROCHLORIDE [Concomitant]
     Active Substance: METFORMIN HYDROCHLORIDE
     Indication: Type 2 diabetes mellitus
     Route: 065
  20. METHYLPREDNISOLONE [Concomitant]
     Active Substance: METHYLPREDNISOLONE
     Indication: Type 2 diabetes mellitus
     Route: 042
     Dates: start: 20221017, end: 20221021
  21. NOVORAPID [Concomitant]
     Active Substance: INSULIN ASPART
     Indication: Type 2 diabetes mellitus
     Route: 065
  22. POTASSIUM [Concomitant]
     Active Substance: POTASSIUM
     Indication: Hypokalaemia
     Route: 065
  23. NADROPARIN [Concomitant]
     Active Substance: NADROPARIN
     Indication: Pulmonary embolism
     Dosage: 19000 INTERNATIONAL UNIT, ONCE A DAY
     Route: 065
     Dates: start: 202210
  24. OXYGEN [Concomitant]
     Active Substance: OXYGEN
     Indication: Dyspnoea
     Route: 065

REACTIONS (32)
  - Aspiration [Recovered/Resolved]
  - Respiratory failure [Recovered/Resolved]
  - Ileus paralytic [Recovered/Resolved]
  - Hypoxia [Recovered/Resolved]
  - Encephalitis [Recovered/Resolved]
  - Generalised tonic-clonic seizure [Not Recovered/Not Resolved]
  - Hypokalaemia [Recovered/Resolved]
  - Encephalopathy [Not Recovered/Not Resolved]
  - Pneumonia aspiration [Recovered/Resolved]
  - Delirium [Recovered/Resolved]
  - Partial seizures [Not Recovered/Not Resolved]
  - Faciobrachial dystonic seizure [Not Recovered/Not Resolved]
  - Status epilepticus [Recovered/Resolved]
  - Altered state of consciousness [Not Recovered/Not Resolved]
  - Hypotension [Recovered/Resolved]
  - Anaemia [Not Recovered/Not Resolved]
  - Hyponatraemia [Not Recovered/Not Resolved]
  - Diarrhoea [Not Recovered/Not Resolved]
  - Decubitus ulcer [Not Recovered/Not Resolved]
  - Gamma-glutamyltransferase increased [Not Recovered/Not Resolved]
  - Hypomagnesaemia [Not Recovered/Not Resolved]
  - Hyperglycaemia [Not Recovered/Not Resolved]
  - Electrolyte imbalance [Not Recovered/Not Resolved]
  - Leukocytosis [Recovered/Resolved]
  - Pyrexia [Recovered/Resolved]
  - Aspartate aminotransferase increased [Recovered/Resolved]
  - Hypernatraemia [Recovered/Resolved]
  - Blood immunoglobulin G increased [Recovered/Resolved]
  - COVID-19 [Recovered/Resolved]
  - Drug ineffective for unapproved indication [Recovered/Resolved]
  - Off label use [Unknown]
  - No adverse event [Unknown]

NARRATIVE: CASE EVENT DATE: 20221001
